FAERS Safety Report 5869950-3 (Version None)
Quarter: 2008Q3

REPORT INFORMATION
  Report Type: 
  Country: None (occurrence: None)
  Receive Date: 20080904
  Receipt Date: 20080826
  Transmission Date: 20090109
  Serious: Yes (Hospitalization)
  Sender: FDA-Public Use
  Company Number: JP-PFIZER INC-2006040348

PATIENT
  Sex: Male
  Weight: 52 kg

DRUGS (5)
  1. SU-011,248 [Suspect]
     Indication: GASTRIC CANCER
     Route: 048
     Dates: start: 20060228, end: 20060312
  2. HERBAL PREPARATION [Concomitant]
     Route: 048
     Dates: start: 20050620, end: 20060412
  3. MAGNESIUM OXIDE [Concomitant]
     Route: 048
     Dates: start: 20050704, end: 20060412
  4. UREA [Concomitant]
     Route: 061
  5. BROTIZOLAM [Concomitant]
     Route: 048
     Dates: start: 20060410, end: 20060413

REACTIONS (3)
  - DECREASED APPETITE [None]
  - FATIGUE [None]
  - INFECTION [None]
